FAERS Safety Report 6749501-1 (Version None)
Quarter: 2010Q2

REPORT INFORMATION
  Report Type: 
  Country: None (occurrence: None)
  Receive Date: 20100601
  Receipt Date: 20100517
  Transmission Date: 20101027
  Serious: Yes (Other)
  Sender: FDA-Public Use
  Company Number: AT-ROCHE-705841

PATIENT
  Age: 46 Year
  Sex: Female

DRUGS (5)
  1. GANCICLOVIR SODIUM [Suspect]
     Dosage: ROUTE: INTRAVENOUS.
     Route: 050
  2. GANCICLOVIR SODIUM [Suspect]
     Dosage: WEEKLY INJECTIONS.
     Route: 050
  3. GANCICLOVIR SODIUM [Suspect]
     Dosage: ROUTE: INTRAVITREAL.
     Route: 050
  4. VALGANCICLOVIR HCL [Suspect]
     Route: 048
  5. VALGANCICLOVIR HCL [Suspect]
     Dosage: DOSAGE REDUCED BY 50%.
     Route: 048

REACTIONS (2)
  - BONE MARROW FAILURE [None]
  - CYTOMEGALOVIRUS CHORIORETINITIS [None]
